FAERS Safety Report 9416995 (Version 1)
Quarter: 2013Q3

REPORT INFORMATION
  Report Type: Spontaneous
  Country: FR (occurrence: FR)
  Receive Date: 20130724
  Receipt Date: 20130724
  Transmission Date: 20140515
  Serious: Yes (Hospitalization)
  Sender: FDA-Public Use
  Company Number: PHHY2013FR077564

PATIENT
  Age: 72 Year
  Sex: Male

DRUGS (3)
  1. IRINOTECAN EBEWE [Suspect]
     Indication: COLON CANCER METASTATIC
     Dosage: UNK
     Route: 042
     Dates: start: 20130703, end: 20130703
  2. ERBITUX [Suspect]
     Indication: COLON CANCER METASTATIC
     Route: 042
     Dates: start: 20130703, end: 20130703
  3. FLUOROURACILE ACCORD [Suspect]
     Indication: COLON CANCER METASTATIC
     Route: 042
     Dates: start: 20130703, end: 20130703

REACTIONS (2)
  - Oxygen saturation decreased [Recovered/Resolved]
  - Chills [Recovered/Resolved]
